FAERS Safety Report 4745065-2 (Version None)
Quarter: 2005Q3

REPORT INFORMATION
  Report Type: 
  Country: None (occurrence: None)
  Receive Date: 20050811
  Receipt Date: 20050802
  Transmission Date: 20060218
  Serious: Yes (Hospitalization)
  Sender: FDA-Public Use
  Company Number: CIP05001686

PATIENT
  Age: 65 Year
  Sex: Female
  Weight: 73.9 kg

DRUGS (6)
  1. ACTONEL [Suspect]
     Indication: OSTEOPOROSIS
     Dosage: 30 MG ONCE WEEKLY, ORAL
     Route: 048
     Dates: start: 20020101, end: 20050101
  2. ACTONEL [Suspect]
     Indication: OSTEOPOROSIS
     Dosage: 35 MG ONCE WEEKLY, ORAL
     Route: 048
     Dates: start: 20050601
  3. ACIPHEX [Concomitant]
  4. LESCOL [Concomitant]
  5. CALCIUM (CALCIUM) [Concomitant]
  6. DARVOCET-N (PARACETAMOL, DEXTROPROPOXYPHENE NAPSILATE) [Concomitant]

REACTIONS (8)
  - BONE DISORDER [None]
  - CONDITION AGGRAVATED [None]
  - DYSPEPSIA [None]
  - EYE INFECTION [None]
  - HAEMOGLOBIN DECREASED [None]
  - JAW DISORDER [None]
  - POST PROCEDURAL HAEMORRHAGE [None]
  - SWELLING FACE [None]
